FAERS Safety Report 5425384-7 (Version None)
Quarter: 2007Q3

REPORT INFORMATION
  Report Type: 
  Country: None (occurrence: None)
  Receive Date: 20070824
  Receipt Date: 20070824
  Transmission Date: 20080115
  Serious: Yes (Hospitalization)
  Sender: FDA-Public Use
  Company Number: DE-ROXANE LABORATORIES, INC-2007-DE-04931GD

PATIENT
  Age: 62 Year
  Sex: Male

DRUGS (4)
  1. PARACETAMOL [Suspect]
  2. AMLODIPINE [Suspect]
  3. MIRTAZAPINE [Suspect]
  4. ZOLPIDEM [Suspect]

REACTIONS (2)
  - COMA [None]
  - DRUG TOXICITY [None]
